FAERS Safety Report 23606013 (Version 1)
Quarter: 2024Q1

REPORT INFORMATION
  Report Type: Spontaneous
  Country: CA (occurrence: CA)
  Receive Date: 20240307
  Receipt Date: 20240307
  Transmission Date: 20240410
  Serious: Yes (Death)
  Sender: FDA-Public Use
  Company Number: CA-TEVA-VS-3163899

PATIENT
  Age: 54 Year
  Sex: Female

DRUGS (5)
  1. GLATIRAMER ACETATE [Suspect]
     Active Substance: GLATIRAMER ACETATE
     Indication: Multiple sclerosis
     Dosage: TIME INTERVAL: 0.33333333 WEEKS
     Route: 058
  2. PERINDOPRIL [Concomitant]
     Active Substance: PERINDOPRIL
     Route: 065
  3. GLICLAZIDE [Concomitant]
     Active Substance: GLICLAZIDE
     Route: 065
  4. NEXIUM [Concomitant]
     Active Substance: ESOMEPRAZOLE MAGNESIUM
     Dosage: DOSE FORM: NOT SPECIFIED
     Route: 065
  5. OZEMPIC [Concomitant]
     Active Substance: SEMAGLUTIDE
     Route: 065

REACTIONS (1)
  - Pancreatic carcinoma [Fatal]
